FAERS Safety Report 10821359 (Version 1)
Quarter: 2015Q1

REPORT INFORMATION
  Report Type: Report from Study
  Country: US (occurrence: None)
  Receive Date: 20150213
  Receipt Date: 20150213
  Transmission Date: 20150721
  Serious: Yes (Hospitalization, Other)
  Sender: FDA-Public Use
  Company Number: 2014BI000351

PATIENT
  Age: 52 Year
  Sex: Male

DRUGS (4)
  1. TECFIDERA [Suspect]
     Active Substance: DIMETHYL FUMARATE
     Indication: MULTIPLE SCLEROSIS
     Route: 048
     Dates: start: 20130614, end: 20130620
  2. TYSABRI [Concomitant]
     Active Substance: NATALIZUMAB
  3. COPAXONE [Concomitant]
     Active Substance: GLATIRAMER ACETATE
  4. BETASERON [Concomitant]
     Active Substance: INTERFERON BETA-1B

REACTIONS (5)
  - Dysstasia [None]
  - Abasia [None]
  - Infection [None]
  - Hepatic enzyme increased [None]
  - Sensory loss [None]

NARRATIVE: CASE EVENT DATE: 20131228
